FAERS Safety Report 19655866 (Version 1)
Quarter: 2021Q3

REPORT INFORMATION
  Report Type: Spontaneous
  Country: AU (occurrence: AU)
  Receive Date: 20210804
  Receipt Date: 20210804
  Transmission Date: 20211014
  Serious: Yes (Other)
  Sender: FDA-Public Use
  Company Number: AU-AMGEN-AUSSP2021115965

PATIENT

DRUGS (2)
  1. OSTELIN VIT D + CA [Concomitant]
  2. PROLIA [Suspect]
     Active Substance: DENOSUMAB
     Indication: PRODUCT USED FOR UNKNOWN INDICATION
     Dosage: UNK
     Route: 065

REACTIONS (2)
  - Ill-defined disorder [Unknown]
  - Intestinal resection [Unknown]

NARRATIVE: CASE EVENT DATE: 2021
